FAERS Safety Report 6909390-9 (Version None)
Quarter: 2010Q3

REPORT INFORMATION
  Report Type: 
  Country: None (occurrence: None)
  Receive Date: 20100805
  Receipt Date: 20100729
  Transmission Date: 20110219
  Serious: Yes (Other)
  Sender: FDA-Public Use
  Company Number: US-RB-012312-10

PATIENT
  Sex: Male

DRUGS (4)
  1. SUBOXONE [Suspect]
     Indication: DRUG DEPENDENCE
     Route: 060
     Dates: start: 20100401
  2. VALIUM [Suspect]
     Indication: ANXIETY DISORDER
     Route: 048
     Dates: end: 20100701
  3. ROBAXIN [Suspect]
     Indication: MUSCLE SPASMS
     Route: 048
     Dates: start: 20100721, end: 20100724
  4. ZANAFLEX [Suspect]
     Indication: MUSCLE SPASMS
     Dosage: UNKNOWN DOSING DETAILS
     Route: 048
     Dates: start: 20100701, end: 20100720

REACTIONS (5)
  - ABNORMAL DREAMS [None]
  - DIZZINESS [None]
  - FEELING HOT [None]
  - HALLUCINATION [None]
  - HYPERHIDROSIS [None]
